FAERS Safety Report 24393313 (Version 1)
Quarter: 2024Q4

REPORT INFORMATION
  Report Type: Spontaneous
  Country: US (occurrence: US)
  Receive Date: 20241003
  Receipt Date: 20241003
  Transmission Date: 20250115
  Serious: No
  Sender: HARMONY BIOSCIENCES
  Company Number: US-HARMONY BIOSCIENCES-2023HMY01556

PATIENT

DRUGS (2)
  1. WAKIX [Suspect]
     Active Substance: PITOLISANT HYDROCHLORIDE
     Indication: Narcolepsy
     Dosage: 35.6 MG, 1X/DAY
     Route: 065
  2. WAKIX [Suspect]
     Active Substance: PITOLISANT HYDROCHLORIDE
     Indication: Cataplexy

REACTIONS (3)
  - Swollen tongue [Recovering/Resolving]
  - Dizziness [Recovering/Resolving]
  - Syncope [Recovering/Resolving]
